FAERS Safety Report 10685284 (Version 1)
Quarter: 2014Q4

REPORT INFORMATION
  Report Type: Spontaneous
  Country: None (occurrence: None)
  Receive Date: 20141217
  Receipt Date: 20141217
  Transmission Date: 20150529
  Serious: Yes (Other)
  Sender: FDA-Public Use
  Company Number: TPA2010A04312

PATIENT
  Sex: Female

DRUGS (5)
  1. CELEBREX [Suspect]
     Active Substance: CELECOXIB
     Indication: ARTHRITIS
  2. LORTAB (PARACETAMOL HYDROCODONE BITARTRATE) [Concomitant]
  3. LEVBID [Suspect]
     Active Substance: HYOSCYAMINE SULFATE
  4. KAPIDEX [Suspect]
     Active Substance: DEXLANSOPRAZOLE
     Indication: PRODUCT USED FOR UNKNOWN INDICATION
     Route: 048
  5. CODEINE [Concomitant]
     Active Substance: CODEINE

REACTIONS (6)
  - Ovarian cyst [None]
  - Diverticulitis [None]
  - Blood pressure increased [None]
  - Muscle spasms [None]
  - Dyspepsia [None]
  - Pain [None]
